FAERS Safety Report 15359261 (Version 1)
Quarter: 2018Q3

REPORT INFORMATION
  Report Type: Report from Study
  Country: None (occurrence: GB)
  Receive Date: 20180907
  Receipt Date: 20180907
  Transmission Date: 20181010
  Serious: Yes (Hospitalization)
  Sender: FDA-Public Use
  Company Number: GB-ABBVIE-18K-167-2474977-00

PATIENT
  Sex: Female

DRUGS (1)
  1. HUMIRA [Suspect]
     Active Substance: ADALIMUMAB
     Indication: CROHN^S DISEASE
     Route: 058
     Dates: start: 20180117, end: 201808

REACTIONS (2)
  - Buttock injury [Not Recovered/Not Resolved]
  - Abdominal wall wound [Not Recovered/Not Resolved]

NARRATIVE: CASE EVENT DATE: 2018
